FAERS Safety Report 25044197 (Version 3)
Quarter: 2025Q2

REPORT INFORMATION
  Report Type: Report from Study
  Country: US (occurrence: US)
  Receive Date: 20250306
  Receipt Date: 20250425
  Transmission Date: 20250716
  Serious: Yes (Hospitalization, Other)
  Sender: ABBVIE
  Company Number: US-ABBVIE-6160619

PATIENT
  Age: 56 Year
  Sex: Female
  Weight: 54.431 kg

DRUGS (6)
  1. SKYRIZI [Suspect]
     Active Substance: RISANKIZUMAB-RZAA
     Indication: Crohn^s disease
     Dosage: FORM STRENGTH: 360MILLIGRAM
     Route: 058
     Dates: start: 202411
  2. SKYRIZI [Suspect]
     Active Substance: RISANKIZUMAB-RZAA
     Indication: Crohn^s disease
     Route: 042
     Dates: start: 20240807, end: 202410
  3. CLONAZEPAM [Concomitant]
     Active Substance: CLONAZEPAM
     Indication: Anxiety
     Dosage: FORM STRENGTH: 1 MILLIGRAM
  4. ZOLPIDEM [Concomitant]
     Active Substance: ZOLPIDEM TARTRATE
     Indication: Sleep disorder
  5. IMIPRAMINE [Concomitant]
     Active Substance: IMIPRAMINE
     Indication: Anxiety
  6. PREDNISONE [Concomitant]
     Active Substance: PREDNISONE
     Indication: Crohn^s disease
     Dates: start: 202407, end: 202501

REACTIONS (8)
  - Intestinal stenosis [Recovering/Resolving]
  - Small intestinal resection [Recovering/Resolving]
  - Injection site reaction [Recovering/Resolving]
  - Feeding disorder [Unknown]
  - Vomiting [Unknown]
  - Hyperhidrosis [Recovered/Resolved]
  - Abdominal pain upper [Recovered/Resolved]
  - Intestinal obstruction [Recovered/Resolved]

NARRATIVE: CASE EVENT DATE: 20241127
